FAERS Safety Report 17834579 (Version 1)
Quarter: 2020Q2

REPORT INFORMATION
  Report Type: Spontaneous
  Country: BE (occurrence: BE)
  Receive Date: 20200528
  Receipt Date: 20200528
  Transmission Date: 20200714
  Serious: Yes (Hospitalization)
  Sender: FDA-Public Use
  Company Number: BE-TEVA-2020-BE-1239628

PATIENT
  Age: 40 Year
  Sex: Male

DRUGS (5)
  1. PANITUMUMAB [Suspect]
     Active Substance: PANITUMUMAB
     Indication: COLON CANCER
     Route: 065
  2. OXALIPLATIN. [Suspect]
     Active Substance: OXALIPLATIN
     Indication: COLON CANCER
     Dosage: PART OF FOLFOX REGIMEN
     Route: 065
  3. FLUOROURACIL. [Suspect]
     Active Substance: FLUOROURACIL
     Indication: COLON CANCER
     Dosage: PART OF FOLFOX AND FOLFIRI REGIMEN
     Route: 065
  4. FOLINIC ACID [Suspect]
     Active Substance: LEUCOVORIN
     Indication: COLON CANCER
     Dosage: PART OF FOLFOX AND FOLFIRI REGIMEN
     Route: 065
  5. IRINOTECAN [Suspect]
     Active Substance: IRINOTECAN
     Indication: COLON CANCER
     Dosage: PART OF FOLFIRI REGIMEN
     Route: 065

REACTIONS (5)
  - Pulmonary sarcoidosis [Recovering/Resolving]
  - Encephalitis [Recovering/Resolving]
  - Blindness [Recovered/Resolved]
  - Neurosarcoidosis [Recovering/Resolving]
  - Myelitis transverse [Recovering/Resolving]
